FAERS Safety Report 10836586 (Version 1)
Quarter: 2015Q1

REPORT INFORMATION
  Report Type: Spontaneous
  Country: AU (occurrence: AU)
  Receive Date: 20150219
  Receipt Date: 20150219
  Transmission Date: 20150721
  Serious: Yes (Other)
  Sender: FDA-Public Use
  Company Number: AU-MYLANLABS-2015M1003677

PATIENT

DRUGS (1)
  1. ALLEREZE [Suspect]
     Active Substance: LORATADINE
     Indication: PRODUCT USED FOR UNKNOWN INDICATION
     Dosage: UNK, PRN

REACTIONS (4)
  - Paraesthesia oral [Unknown]
  - Swollen tongue [Unknown]
  - Hypersensitivity [Unknown]
  - Tongue eruption [Unknown]
